FAERS Safety Report 7740951-3 (Version None)
Quarter: 2011Q3

REPORT INFORMATION
  Report Type: 
  Country: None (occurrence: None)
  Receive Date: 20110909
  Receipt Date: 20110905
  Transmission Date: 20111222
  Serious: Yes (Death, Hospitalization)
  Sender: FDA-Public Use
  Company Number: PHHY2011ES79440

PATIENT
  Age: 38 Year
  Sex: Male

DRUGS (2)
  1. CALCIUM CARBONATE [Concomitant]
  2. CALCITONIN SALMON [Suspect]
     Dosage: UNK UKN, UNK
     Route: 058

REACTIONS (10)
  - CALCIFICATION METASTATIC [None]
  - LUNG INFILTRATION [None]
  - MULTI-ORGAN FAILURE [None]
  - PULMONARY HAEMORRHAGE [None]
  - BRAIN HERNIATION [None]
  - NEUROLOGICAL DECOMPENSATION [None]
  - MULTIPLE MYELOMA [None]
  - RESPIRATORY DISTRESS [None]
  - SUBDURAL HAEMATOMA [None]
  - ACUTE RESPIRATORY FAILURE [None]
